FAERS Safety Report 8564367-5 (Version None)
Quarter: 2012Q3

REPORT INFORMATION
  Report Type: 
  Country: None (occurrence: None)
  Receive Date: 20120803
  Receipt Date: 20120726
  Transmission Date: 20120928
  Serious: Yes (Hospitalization, Other)
  Sender: FDA-Public Use
  Company Number: GB-B.I. PHARMACEUTICALS,INC./RIDGEFIELD-2012-UK-00989UK

PATIENT
  Age: 52 Year
  Sex: Female

DRUGS (2)
  1. VIRAMUNE [Suspect]
     Indication: HIV INFECTION
     Dosage: 200 MG
     Route: 048
     Dates: start: 20120424, end: 20120525
  2. ABACAVIR SULFATE/LAMIVUDINE [Concomitant]

REACTIONS (11)
  - PYREXIA [None]
  - LIVER FUNCTION TEST ABNORMAL [None]
  - BLOOD CREATININE INCREASED [None]
  - RASH GENERALISED [None]
  - GLOMERULAR FILTRATION RATE DECREASED [None]
  - MYALGIA [None]
  - RENAL FAILURE ACUTE [None]
  - MALAISE [None]
  - ALANINE AMINOTRANSFERASE INCREASED [None]
  - ARTHRALGIA [None]
  - HYPERSENSITIVITY [None]
